FAERS Safety Report 17122271 (Version 3)
Quarter: 2019Q4

REPORT INFORMATION
  Report Type: Spontaneous
  Country: ES (occurrence: ES)
  Receive Date: 20191206
  Receipt Date: 20191230
  Transmission Date: 20200122
  Serious: Yes (Other)
  Sender: FDA-Public Use
  Company Number: ES-EMD SERONO-9132554

PATIENT
  Sex: Female

DRUGS (11)
  1. CLADRIBINE. [Suspect]
     Active Substance: CLADRIBINE
     Indication: SECONDARY PROGRESSIVE MULTIPLE SCLEROSIS
     Dosage: FIRST YEAR FIRST WEEK THERAPY
     Dates: start: 20181217
  2. CLADRIBINE. [Suspect]
     Active Substance: CLADRIBINE
     Dosage: FIRST YEAR SECOND WEEK THERAPY
     Dates: end: 20190121
  3. DUROGESIC [Concomitant]
     Active Substance: FENTANYL
     Indication: PRODUCT USED FOR UNKNOWN INDICATION
  4. ATORVASTATIN [Concomitant]
     Active Substance: ATORVASTATIN
     Indication: PRODUCT USED FOR UNKNOWN INDICATION
     Dosage: 20 UNSPECIFIED UNITS
  5. DEPRAX                             /00447702/ [Concomitant]
     Active Substance: TRAZODONE HYDROCHLORIDE
     Indication: PRODUCT USED FOR UNKNOWN INDICATION
  6. TRANKIMAZIN [Concomitant]
     Active Substance: ALPRAZOLAM
     Indication: PRODUCT USED FOR UNKNOWN INDICATION
     Dosage: 0.25 UNSPECIFIED UNITS
  7. SAFE                               /00384302/ [Concomitant]
     Indication: PRODUCT USED FOR UNKNOWN INDICATION
  8. OMEPRAZOLE. [Concomitant]
     Active Substance: OMEPRAZOLE
     Indication: PRODUCT USED FOR UNKNOWN INDICATION
  9. DAFIRO [Concomitant]
     Active Substance: AMLODIPINE\VALSARTAN
     Indication: PRODUCT USED FOR UNKNOWN INDICATION
     Dosage: 5/160/25 (UNSPECIFIED UNITS).
  10. SINTROM [Concomitant]
     Active Substance: ACENOCOUMAROL
     Indication: FACTOR V LEIDEN MUTATION
  11. ATENOLOL. [Concomitant]
     Active Substance: ATENOLOL
     Indication: PRODUCT USED FOR UNKNOWN INDICATION
     Dosage: 25 (UNSPECIFIED UNITS) EVERY 12 (UNSPECIFIED).

REACTIONS (4)
  - Lung adenocarcinoma stage IV [Unknown]
  - Lymphocyte count decreased [Unknown]
  - Metastases to central nervous system [Unknown]
  - Back pain [Unknown]
